FAERS Safety Report 18387158 (Version 1)
Quarter: 2020Q4

REPORT INFORMATION
  Report Type: Spontaneous
  Country: US (occurrence: US)
  Receive Date: 20201015
  Receipt Date: 20201015
  Transmission Date: 20210114
  Serious: No
  Sender: FDA-Public Use
  Company Number: None

PATIENT
  Age: 74 Year
  Sex: Male
  Weight: 87.9 kg

DRUGS (13)
  1. VITAMIN C 500MG DAILY [Concomitant]
     Dates: start: 20201009, end: 20201014
  2. ENOXAPARIN 90MG SQ Q12H [Concomitant]
     Dates: start: 20201009, end: 20201014
  3. CHOLECALCIFEROL 25MCG [Concomitant]
     Dates: start: 20201009, end: 20201014
  4. MONTELEUKAST 10MG DAILY [Concomitant]
     Dates: start: 20201009, end: 20201014
  5. REMDESIVIR. [Suspect]
     Active Substance: REMDESIVIR
     Indication: COVID-19
     Dosage: ?          OTHER FREQUENCY:ONCE;?
     Route: 042
     Dates: start: 20201009, end: 20201009
  6. INSULIN LISPRO SLIDING SCALE [Concomitant]
     Dates: start: 20201011, end: 20201014
  7. SENNA/DOCUSATE 8.6/50MG DAILY [Concomitant]
     Dates: start: 20201009, end: 20201014
  8. FAMOTIDINE 20MG DAILY [Concomitant]
     Dates: start: 20201009, end: 20201014
  9. LEVOTHYROXINE 100MCG DAILY [Concomitant]
     Dates: start: 20201009, end: 20201014
  10. ZINC SULFATE 220MG PO DAILY [Concomitant]
     Dates: start: 20201009, end: 20201014
  11. ACETAMINOPHEN 650MG Q6H PRN [Concomitant]
     Dates: start: 20201008, end: 20201014
  12. PREDNISONE 40MG DAILY [Concomitant]
     Dates: start: 20201014, end: 20201014
  13. AMLODIPINE 10MG DAILY [Concomitant]
     Dates: start: 20201011, end: 20201014

REACTIONS (1)
  - Liver function test increased [None]

NARRATIVE: CASE EVENT DATE: 20201010
